FAERS Safety Report 5962418-5 (Version None)
Quarter: 2008Q4

REPORT INFORMATION
  Report Type: 
  Country: None (occurrence: None)
  Receive Date: 20081121
  Receipt Date: 20081113
  Transmission Date: 20090506
  Serious: Yes (Death)
  Sender: FDA-Public Use
  Company Number: JP-MERCK-0811USA02532

PATIENT
  Age: 58 Year

DRUGS (3)
  1. PEPCID RPD [Suspect]
     Route: 048
  2. ASPIRIN [Concomitant]
     Route: 048
  3. PLAVIX [Concomitant]
     Route: 065

REACTIONS (1)
  - RHABDOMYOLYSIS [None]
